FAERS Safety Report 7377302-2 (Version None)
Quarter: 2011Q1

REPORT INFORMATION
  Report Type: 
  Country: None (occurrence: None)
  Receive Date: 20110328
  Receipt Date: 20110318
  Transmission Date: 20110831
  Serious: Yes (Hospitalization)
  Sender: FDA-Public Use
  Company Number: US-JNJFOC-20110308801

PATIENT
  Sex: Male

DRUGS (1)
  1. DURAGESIC-50 [Suspect]
     Indication: PAIN
     Route: 062

REACTIONS (1)
  - SURGERY [None]
